FAERS Safety Report 4477526-8 (Version None)
Quarter: 2004Q4

REPORT INFORMATION
  Report Type: 
  Country: None (occurrence: None)
  Receive Date: 20041018
  Receipt Date: 20041008
  Transmission Date: 20050328
  Serious: Yes (Hospitalization)
  Sender: FDA-Public Use
  Company Number: FR-GLAXOSMITHKLINE-B0347637A

PATIENT
  Age: 85 Year
  Sex: Female
  Weight: 75 kg

DRUGS (13)
  1. SERETIDE [Suspect]
     Indication: BRONCHITIS
     Dosage: 500MCG TWICE PER DAY
     Route: 055
     Dates: end: 20040506
  2. AUGMENTIN '125' [Suspect]
     Indication: BRONCHITIS ACUTE
     Dosage: 1G PER DAY
     Route: 048
     Dates: start: 20040502, end: 20040506
  3. COLCHICINE [Suspect]
     Dosage: 500MCG PER DAY
     Route: 048
     Dates: end: 20040506
  4. MOPRAL [Suspect]
     Dosage: 20MG PER DAY
     Route: 048
     Dates: start: 20040502
  5. EFFEXOR [Suspect]
     Indication: DYSTHYMIC DISORDER
     Dosage: 37.5MG TWICE PER DAY
     Route: 048
     Dates: start: 20040429, end: 20040511
  6. CLAMOXYL [Concomitant]
     Indication: BRONCHITIS
     Dates: start: 20040401, end: 20040401
  7. CORTANCYL [Concomitant]
     Indication: BRONCHITIS
     Dates: start: 20040401
  8. ASASANTINE [Concomitant]
  9. NOCTRAN [Concomitant]
  10. CACIT D3 [Concomitant]
  11. CODOLIPRANE [Concomitant]
  12. FORLAX [Concomitant]
  13. FUNGIZONE [Concomitant]

REACTIONS (7)
  - AGITATION [None]
  - BILE DUCT STONE [None]
  - BRONCHOPNEUMOPATHY [None]
  - CRYING [None]
  - DIARRHOEA [None]
  - GENERAL PHYSICAL HEALTH DETERIORATION [None]
  - PYREXIA [None]
